FAERS Safety Report 12573969 (Version 1)
Quarter: 2016Q3

REPORT INFORMATION
  Report Type: Spontaneous
  Country: NL (occurrence: NL)
  Receive Date: 20160720
  Receipt Date: 20160720
  Transmission Date: 20161109
  Serious: Yes (Hospitalization)
  Sender: FDA-Public Use
  Company Number: NL-ROCHE-1797311

PATIENT
  Age: 71 Year
  Sex: Male

DRUGS (5)
  1. COTELLIC [Suspect]
     Active Substance: COBIMETINIB
     Indication: MALIGNANT MELANOMA
     Dosage: 1 KEER PER DAG 3 STUK(S)
     Route: 048
     Dates: start: 20160602, end: 20160617
  2. PANTOPRAZOL [Concomitant]
     Active Substance: PANTOPRAZOLE SODIUM
     Dosage: 1DD1
     Route: 048
  3. DEXAMETHASON [Concomitant]
     Active Substance: DEXAMETHASONE
     Dosage: 2DD1
     Route: 048
  4. VEMURAFENIB [Suspect]
     Active Substance: VEMURAFENIB
     Indication: MALIGNANT MELANOMA
     Dosage: 2 KEER PER DAG 4 STUK(S)
     Route: 048
     Dates: start: 20160602, end: 20160617
  5. ASCAL CARDIO [Concomitant]
     Active Substance: CARBASALATE
     Dosage: 1DD1
     Route: 048

REACTIONS (4)
  - Mucosal inflammation [Recovering/Resolving]
  - Liver function test abnormal [Recovering/Resolving]
  - Nail disorder [Recovering/Resolving]
  - Arthralgia [Recovering/Resolving]

NARRATIVE: CASE EVENT DATE: 20160614
